FAERS Safety Report 10165956 (Version 1)
Quarter: 2014Q2

REPORT INFORMATION
  Report Type: Spontaneous
  Country: CO (occurrence: CO)
  Receive Date: 20140510
  Receipt Date: 20140510
  Transmission Date: 20141212
  Serious: Yes (Hospitalization)
  Sender: FDA-Public Use
  Company Number: CO-MYLANLABS-2014S1010324

PATIENT
  Age: 33 Year
  Sex: Female

DRUGS (3)
  1. THIAMAZOLE [Suspect]
     Indication: BASEDOW^S DISEASE
     Route: 065
  2. PROPRANOLOL [Concomitant]
     Indication: BASEDOW^S DISEASE
     Route: 065
  3. OMEPRAZOLE [Concomitant]
     Indication: PEPTIC ULCER
     Dosage: 20MG DAILY
     Route: 065

REACTIONS (6)
  - Jaundice cholestatic [Recovered/Resolved]
  - Deficiency of bile secretion [Unknown]
  - Choluria [Unknown]
  - Asthenia [Unknown]
  - Abdominal pain upper [Unknown]
  - Pruritus [Unknown]
